FAERS Safety Report 15695796 (Version 1)
Quarter: 2018Q4

REPORT INFORMATION
  Report Type: Spontaneous
  Country: US (occurrence: US)
  Receive Date: 20181206
  Receipt Date: 20181206
  Transmission Date: 20190205
  Serious: Yes (Other)
  Sender: FDA-Public Use
  Company Number: US-SA-2018SA031630

PATIENT
  Age: 47 Year
  Sex: Female

DRUGS (3)
  1. TAXOTERE [Suspect]
     Active Substance: DOCETAXEL
     Dosage: 46 AND 135MG, 1-3 WEEKS
     Route: 042
     Dates: start: 20140924, end: 20140924
  2. TAXOTERE [Suspect]
     Active Substance: DOCETAXEL
     Indication: BREAST CANCER
     Dosage: 46 AND 135MG, 1-3 WEEKS
     Route: 042
     Dates: start: 20140825, end: 20140825
  3. TAXOL [Concomitant]
     Active Substance: PACLITAXEL

REACTIONS (2)
  - Alopecia [Not Recovered/Not Resolved]
  - Psychological trauma [Unknown]

NARRATIVE: CASE EVENT DATE: 201409
